FAERS Safety Report 24047779 (Version 2)
Quarter: 2024Q4

REPORT INFORMATION
  Report Type: Spontaneous
  Country: US (occurrence: US)
  Receive Date: 20240703
  Receipt Date: 20241008
  Transmission Date: 20250114
  Serious: No
  Sender: NOVARTIS
  Company Number: US-002147023-NVSC2024US132633

PATIENT

DRUGS (1)
  1. COSENTYX [Suspect]
     Active Substance: SECUKINUMAB
     Indication: Product used for unknown indication
     Dosage: 300 MG
     Route: 065

REACTIONS (6)
  - Nausea [Unknown]
  - Feeling hot [Unknown]
  - Product physical issue [Unknown]
  - Injection site pain [Unknown]
  - Injection site mass [Unknown]
  - Injection site haemorrhage [Unknown]
